FAERS Safety Report 14967101 (Version 1)
Quarter: 2018Q2

REPORT INFORMATION
  Report Type: Spontaneous
  Country: BR (occurrence: BR)
  Receive Date: 20180604
  Receipt Date: 20180604
  Transmission Date: 20180711
  Serious: Yes (Hospitalization, Other)
  Sender: FDA-Public Use
  Company Number: BR-CHEPLA-1916294

PATIENT
  Sex: Female

DRUGS (1)
  1. VESANOID [Suspect]
     Active Substance: TRETINOIN
     Indication: LEUKAEMIA

REACTIONS (3)
  - Bacterial infection [Unknown]
  - Asthenia [Unknown]
  - Gastrointestinal infection [Unknown]
